FAERS Safety Report 16238038 (Version 1)
Quarter: 2019Q2

REPORT INFORMATION
  Report Type: Spontaneous
  Country: US (occurrence: US)
  Receive Date: 20190321
  Receipt Date: 20190321
  Transmission Date: 20190711
  Serious: Yes (Hospitalization)
  Sender: FDA-Public Use
  Company Number: None

PATIENT
  Age: 64 Year
  Sex: Female

DRUGS (36)
  1. NITRO-BID OINT 2% [Concomitant]
  2. HYDROCOD/APAP 10-500MG [Concomitant]
  3. DILAUDID 2 MG [Concomitant]
  4. CIRPOFLOXACIN 250 MG [Concomitant]
  5. CELEBREX [Concomitant]
     Active Substance: CELECOXIB
  6. LEVAQUIN [Concomitant]
     Active Substance: LEVOFLOXACIN
  7. DOXYCYCLINE. [Concomitant]
     Active Substance: DOXYCYCLINE
  8. TYVASO SOL 0.6/ML [Concomitant]
  9. ALPRAZOLAM 0.25MG [Concomitant]
     Active Substance: ALPRAZOLAM
  10. PREDNISONE 2.5MG [Concomitant]
  11. PAXIL 10MG [Concomitant]
  12. POTASSIUM 99 MG [Concomitant]
  13. CLINDAMYCIN 300 MG [Concomitant]
     Active Substance: CLINDAMYCIN PHOSPHATE
  14. HYDROMORPHONE 2 MG [Concomitant]
  15. XOPENEX NEB 0.31MG [Concomitant]
  16. PROVENTIL HFA [Concomitant]
     Active Substance: ALBUTEROL SULFATE
  17. NITROGLYC 0.4 MG [Concomitant]
  18. LIDOCAINE 5% [Concomitant]
     Active Substance: LIDOCAINE
  19. FLUTICASONE. [Concomitant]
     Active Substance: FLUTICASONE
  20. PLAVIX [Concomitant]
     Active Substance: CLOPIDOGREL BISULFATE
  21. VIBRAMYCIN 100 MG [Concomitant]
  22. ACIPHEX 20 MG [Concomitant]
  23. PROPIONATE [Concomitant]
  24. ENOXAPARIN INJ 80 MG/0.8 ML [Concomitant]
  25. LETAIRIS [Suspect]
     Active Substance: AMBRISENTAN
     Indication: PULMONARY ARTERIAL HYPERTENSION
     Route: 048
  26. PAROXETINE 10 MG [Concomitant]
  27. LEVOTHYROXINE 125 MCG [Concomitant]
     Active Substance: LEVOTHYROXINE SODIUM
  28. XOPENEX NEB 0.31MG [Concomitant]
  29. MORPHINE SUL  15MG [Concomitant]
     Active Substance: MORPHINE SULFATE
  30. COUMADIN [Concomitant]
     Active Substance: WARFARIN SODIUM
  31. LASIX [Concomitant]
     Active Substance: FUROSEMIDE
  32. AROVENT HFA AER 75 MCG [Concomitant]
  33. DILTIAZEM 30 MG [Concomitant]
  34. DICYCLOMINE [Concomitant]
     Active Substance: DICYCLOMINE HYDROCHLORIDE
  35. SENNA -A-TAB 8.6-50MG [Concomitant]
  36. FOLGARD TAB [Concomitant]

REACTIONS (3)
  - Fall [None]
  - Intra-abdominal haematoma [None]
  - Ankle fracture [None]

NARRATIVE: CASE EVENT DATE: 20190317
